FAERS Safety Report 24645532 (Version 4)
Quarter: 2025Q2

REPORT INFORMATION
  Report Type: Spontaneous
  Country: CA (occurrence: CA)
  Receive Date: 20241121
  Receipt Date: 20250627
  Transmission Date: 20250717
  Serious: Yes (Other)
  Sender: CELLTRION
  Company Number: CA-CELLTRION INC.-2024CA028620

PATIENT

DRUGS (28)
  1. YUFLYMA [Suspect]
     Active Substance: ADALIMUMAB-AATY
     Indication: Hidradenitis
  2. INFLIXIMAB [Suspect]
     Active Substance: INFLIXIMAB
     Indication: Product used for unknown indication
     Dates: start: 20241202
  3. ADALIMUMAB [Concomitant]
     Active Substance: ADALIMUMAB
     Route: 058
     Dates: start: 20240214, end: 20240513
  4. BETADERM [Concomitant]
     Active Substance: BETAMETHASONE VALERATE
     Dates: start: 20241004
  5. CLINDAMYCIN [Concomitant]
     Active Substance: CLINDAMYCIN
     Dates: start: 20240214, end: 20240514
  6. CLINDAMYCIN [Concomitant]
     Active Substance: CLINDAMYCIN
     Route: 058
     Dates: start: 20241004
  7. DOXYCYCLINE [Concomitant]
     Active Substance: DOXYCYCLINE
     Dates: start: 20240730, end: 20240806
  8. DULOXETINE [Concomitant]
     Active Substance: DULOXETINE
     Dates: start: 20240608
  9. HYDROXYZINE [Concomitant]
     Active Substance: HYDROXYZINE HYDROCHLORIDE
     Dates: start: 20241103
  10. NAPROXEN [Concomitant]
     Active Substance: NAPROXEN
     Dates: start: 20240201
  11. NAPROXEN [Concomitant]
     Active Substance: NAPROXEN
     Dates: start: 20241004
  12. NAPROXEN [Concomitant]
     Active Substance: NAPROXEN
     Dates: start: 20241004, end: 20241018
  13. ACETAMINOPHEN\OXYCODONE HYDROCHLORIDE [Concomitant]
     Active Substance: ACETAMINOPHEN\OXYCODONE HYDROCHLORIDE
     Dates: start: 20240402
  14. PREDNISONE [Concomitant]
     Active Substance: PREDNISONE
     Dates: start: 20241108, end: 20241117
  15. PREDNISONE [Concomitant]
     Active Substance: PREDNISONE
     Dates: start: 20241118, end: 20241127
  16. PREDNISONE [Concomitant]
     Active Substance: PREDNISONE
     Dates: start: 20241128, end: 20241207
  17. PREDNISONE [Concomitant]
     Active Substance: PREDNISONE
     Dates: start: 20241208, end: 20241214
  18. PREGABALIN [Concomitant]
     Active Substance: PREGABALIN
     Dates: start: 20240608
  19. RIFAMPIN [Concomitant]
     Active Substance: RIFAMPIN
     Dates: start: 20240214, end: 20240514
  20. RIFAMPIN [Concomitant]
     Active Substance: RIFAMPIN
     Dates: start: 20241004
  21. ACETAMINOPHEN\OXYCODONE HYDROCHLORIDE [Concomitant]
     Active Substance: ACETAMINOPHEN\OXYCODONE HYDROCHLORIDE
  22. CLINDAMYCIN [Concomitant]
     Active Substance: CLINDAMYCIN
  23. NAPROXEN [Concomitant]
     Active Substance: NAPROXEN
  24. RIFAMPIN [Concomitant]
     Active Substance: RIFAMPIN
  25. DULOXETINE [Concomitant]
     Active Substance: DULOXETINE
     Route: 065
  26. PREDNISONE [Concomitant]
     Active Substance: PREDNISONE
  27. PREDNISONE [Concomitant]
     Active Substance: PREDNISONE
  28. PREDNISONE [Concomitant]
     Active Substance: PREDNISONE

REACTIONS (2)
  - Hidradenitis [Not Recovered/Not Resolved]
  - Drug ineffective [Not Recovered/Not Resolved]

NARRATIVE: CASE EVENT DATE: 20240901
